FAERS Safety Report 13999455 (Version 1)
Quarter: 2017Q3

REPORT INFORMATION
  Report Type: Spontaneous
  Country: CH (occurrence: CH)
  Receive Date: 20170922
  Receipt Date: 20170922
  Transmission Date: 20171128
  Serious: Yes (Hospitalization)
  Sender: FDA-Public Use
  Company Number: CH-TEVA-806984ISR

PATIENT
  Age: 85 Year
  Sex: Female

DRUGS (8)
  1. MARCOUMAR [Concomitant]
     Active Substance: PHENPROCOUMON
     Route: 048
  2. PRAVASTATIN. [Concomitant]
     Active Substance: PRAVASTATIN
     Dosage: 0.5 EVERY 1 DAY
     Route: 048
  3. COMILORID TABLETTEN [Suspect]
     Active Substance: AMILORIDE HYDROCHLORIDE\HYDROCHLOROTHIAZIDE
     Indication: OEDEMA PERIPHERAL
     Route: 048
     Dates: start: 2017, end: 20170830
  4. LITHIOFOR [Interacting]
     Active Substance: LITHIUM SULFATE
     Indication: DEPRESSION
     Dosage: 660 MILLIGRAM DAILY;
     Route: 048
     Dates: start: 2007, end: 20170830
  5. INDERAL 40 MG TABLETTEN [Concomitant]
     Indication: TREMOR
     Route: 048
     Dates: end: 20170904
  6. ISOKET RETARD 20 MG TABLETTEN [Concomitant]
     Dosage: 20 MILLIGRAM DAILY;
     Route: 048
  7. APROVEL [Concomitant]
     Active Substance: IRBESARTAN
     Indication: HYPERTENSION
     Dosage: 0.5 TABLET PER DAY
     Route: 048
  8. ARCOXIA [Interacting]
     Active Substance: ETORICOXIB
     Indication: ARTHRITIS
     Route: 048
     Dates: start: 201708, end: 201708

REACTIONS (7)
  - Syncope [Recovered/Resolved]
  - Tremor [Recovered/Resolved]
  - Diarrhoea [Recovered/Resolved]
  - Toxicity to various agents [Recovered/Resolved]
  - Acute kidney injury [Recovered/Resolved]
  - Speech disorder [Recovered/Resolved]
  - Drug interaction [Recovered/Resolved]

NARRATIVE: CASE EVENT DATE: 201708
